FAERS Safety Report 8760926 (Version 1)
Quarter: 2012Q4

REPORT INFORMATION
  Report Type: Report from Study
  Country: CZ (occurrence: CZ)
  Receive Date: 20120830
  Receipt Date: 20120830
  Transmission Date: 20130627
  Serious: Yes (Life-Threatening, Hospitalization)
  Sender: FDA-Public Use
  Company Number: PHHO2012CZ012455

PATIENT
  Age: 67 None
  Sex: Male
  Weight: 97 kg

DRUGS (7)
  1. ALISKIREN [Suspect]
     Indication: CARDIAC FAILURE
     Dosage: UNK
     Route: 048
     Dates: end: 20100824
  2. ENALAPRIL [Suspect]
     Dosage: UNK
     Route: 048
     Dates: end: 20100824
  3. FUROSEMIDE [Concomitant]
     Indication: CARDIAC FAILURE
     Dosage: 40 mg, BID
     Route: 048
     Dates: start: 20100625
  4. DIGITALIS GLYCOSIDES [Concomitant]
     Indication: CARDIAC FAILURE
     Dosage: 0.125 mg, QD
     Route: 048
     Dates: start: 20110324
  5. WARFARIN [Concomitant]
     Indication: ATRIAL FIBRILLATION
     Dosage: 5 mg, QD
     Route: 048
     Dates: start: 20091007
  6. TRIMETAZIDINE [Concomitant]
     Indication: CORONARY ARTERY DISEASE
     Dosage: 35 mg, BID
     Route: 048
     Dates: start: 20060502
  7. OMEPRAZOLE [Concomitant]
     Indication: GASTROOESOPHAGEAL REFLUX DISEASE
     Dosage: 20 mg, BID
     Route: 048
     Dates: start: 20091007

REACTIONS (4)
  - Sleep apnoea syndrome [Not Recovered/Not Resolved]
  - Cardiac failure [Recovering/Resolving]
  - Somnolence [None]
  - Fatigue [None]
